FAERS Safety Report 15477697 (Version 1)
Quarter: 2018Q4

REPORT INFORMATION
  Report Type: Spontaneous
  Country: US (occurrence: US)
  Receive Date: 20181002
  Receipt Date: 20181002
  Transmission Date: 20190205
  Serious: Yes (Other)
  Sender: FDA-Public Use
  Company Number: None

PATIENT
  Age: 71 Year
  Sex: Female
  Weight: 78.75 kg

DRUGS (20)
  1. DICLOFENAC SODIUM. [Suspect]
     Active Substance: DICLOFENAC SODIUM
     Indication: BACK PAIN
     Dosage: ?          QUANTITY:1 4 GMS;?
     Route: 061
  2. FUROSEMIDE. [Concomitant]
     Active Substance: FUROSEMIDE
  3. NITRGLYCERINE [Concomitant]
  4. MULTI VITAMIN [Concomitant]
     Active Substance: VITAMINS
  5. DICLOFENAC SODIUM. [Suspect]
     Active Substance: DICLOFENAC SODIUM
     Indication: NECK PAIN
     Dosage: ?          QUANTITY:1 4 GMS;?
     Route: 061
  6. SIMVASTIN E [Concomitant]
  7. TEMAZEPAM. [Concomitant]
     Active Substance: TEMAZEPAM
  8. LEVOTHYROXINE. [Concomitant]
     Active Substance: LEVOTHYROXINE
  9. OXYCODONE [Concomitant]
     Active Substance: OXYCODONE
  10. CALCIUM [Concomitant]
     Active Substance: CALCIUM
  11. FISH OIL [Concomitant]
     Active Substance: FISH OIL
  12. POTASSIUM [Concomitant]
     Active Substance: POTASSIUM
  13. BUSPIRONE [Concomitant]
     Active Substance: BUSPIRONE HYDROCHLORIDE
  14. BIOTIN [Concomitant]
     Active Substance: BIOTIN
  15. DICLOFENAC SODIUM. [Suspect]
     Active Substance: DICLOFENAC SODIUM
     Indication: ARTHRALGIA
     Dosage: ?          QUANTITY:1 4 GMS;?
     Route: 061
  16. METO PROLOL [Concomitant]
  17. FLUOXETINE [Concomitant]
     Active Substance: FLUOXETINE HYDROCHLORIDE
  18. TIZANIDINE. [Concomitant]
     Active Substance: TIZANIDINE
  19. ASA [Concomitant]
     Active Substance: ASPIRIN
  20. VITAM B-12, C, D3 [Concomitant]

REACTIONS (1)
  - Vth nerve injury [None]

NARRATIVE: CASE EVENT DATE: 20180921
